FAERS Safety Report 7864187 (Version 4)
Quarter: 2013Q4

REPORT INFORMATION
  Report Type: Spontaneous
  Country: US (occurrence: US)
  Receive Date: 20110321
  Receipt Date: 20131218
  Transmission Date: 20140711
  Serious: Yes (Other)
  Sender: FDA-Public Use
  Company Number: US-ROCHE-751333

PATIENT
  Age: 23 Year
  Sex: Female
  Weight: 47.6 kg

DRUGS (1)
  1. ACCUTANE [Suspect]
     Indication: ACNE
     Route: 048
     Dates: start: 19990220, end: 19990625

REACTIONS (6)
  - Inflammatory bowel disease [Unknown]
  - Crohn^s disease [Unknown]
  - Osteoporosis [Unknown]
  - Depression [Unknown]
  - Anal fissure [Unknown]
  - Oral herpes [Unknown]
